FAERS Safety Report 10224504 (Version 3)
Quarter: 2014Q2

REPORT INFORMATION
  Report Type: Spontaneous
  Country: JP (occurrence: JP)
  Receive Date: 20140609
  Receipt Date: 20140625
  Transmission Date: 20141212
  Serious: Yes (Death, Hospitalization, Other)
  Sender: FDA-Public Use
  Company Number: PHHY2014JP013240

PATIENT
  Age: 73 Year
  Sex: Female
  Weight: 57 kg

DRUGS (1)
  1. AFINITOR [Suspect]
     Indication: PANCREATIC NEUROENDOCRINE TUMOUR
     Dosage: 10 MG, DAY
     Route: 048
     Dates: start: 20131211, end: 20131220

REACTIONS (12)
  - Multi-organ failure [Fatal]
  - Malignant neoplasm progression [Fatal]
  - Metastases to liver [Fatal]
  - Movement disorder [Unknown]
  - Decreased appetite [Not Recovered/Not Resolved]
  - Prerenal failure [Recovering/Resolving]
  - Urine output decreased [Unknown]
  - Oedema [Unknown]
  - Oliguria [Unknown]
  - Dehydration [Unknown]
  - Infection [Unknown]
  - Pyrexia [Unknown]
